FAERS Safety Report 5414961-5 (Version None)
Quarter: 2007Q3

REPORT INFORMATION
  Report Type: 
  Country: None (occurrence: None)
  Receive Date: 20070813
  Receipt Date: 20070813
  Transmission Date: 20080115
  Serious: Yes (Life-Threatening, Hospitalization, Disabling)
  Sender: FDA-Public Use
  Company Number: None

PATIENT
  Sex: Female
  Weight: 79.3795 kg

DRUGS (2)
  1. ENBREL [Suspect]
     Indication: PSORIATIC ARTHROPATHY
     Dosage: 50 MG QWK SQ
     Route: 058
     Dates: start: 20060905, end: 20070501
  2. FORTEO [Suspect]
     Indication: OSTEOPOROSIS
     Dosage: 20 MCG QD SQ
     Route: 058
     Dates: start: 20040501, end: 20060501

REACTIONS (1)
  - MULTIPLE MYELOMA [None]
